FAERS Safety Report 10019653 (Version 1)
Quarter: 2014Q1

REPORT INFORMATION
  Report Type: Spontaneous
  Country: DE (occurrence: DE)
  Receive Date: 20140318
  Receipt Date: 20140318
  Transmission Date: 20141002
  Serious: Yes (Other)
  Sender: FDA-Public Use
  Company Number: DE-ACTAVIS-2014-04850

PATIENT
  Age: 63 Year
  Sex: Female

DRUGS (1)
  1. ACYCLOVIR (UNKNOWN) [Suspect]
     Indication: CSF TEST ABNORMAL
     Dosage: 750 MG, UNK
     Route: 042
     Dates: start: 20140218, end: 20140219

REACTIONS (1)
  - Renal failure acute [Recovered/Resolved]
